FAERS Safety Report 9799997 (Version 1)
Quarter: 2014Q1

REPORT INFORMATION
  Report Type: Spontaneous
  Country: US (occurrence: US)
  Receive Date: 20140106
  Receipt Date: 20140106
  Transmission Date: 20141002
  Serious: No
  Sender: FDA-Public Use
  Company Number: US-GILEAD-2010-0030831

PATIENT
  Age: 82 Year
  Sex: Male

DRUGS (14)
  1. LETAIRIS [Suspect]
     Indication: PULMONARY ARTERIAL HYPERTENSION
     Route: 048
     Dates: start: 20090918
  2. ALLOPURINOL [Concomitant]
  3. LOMOTIL [Concomitant]
  4. ZAROXOLYN [Concomitant]
  5. LOPRESSOR [Concomitant]
  6. LASIX [Concomitant]
  7. COUMADIN [Concomitant]
  8. LIPITOR [Concomitant]
  9. LOPID [Concomitant]
  10. ISOSORBIDE [Concomitant]
  11. SYMBICORT [Concomitant]
  12. POTASSIUM CHLORIDE [Concomitant]
  13. MULTIVITAMIN [Concomitant]
  14. TYLENOL [Concomitant]

REACTIONS (1)
  - Diarrhoea [Unknown]
